FAERS Safety Report 19014451 (Version 3)
Quarter: 2022Q1

REPORT INFORMATION
  Report Type: Spontaneous
  Country: US (occurrence: None)
  Receive Date: 20210316
  Receipt Date: 20220202
  Transmission Date: 20220423
  Serious: Yes (Other)
  Sender: FDA-Public Use
  Company Number: 2018SF65852

PATIENT
  Age: 54 Year
  Sex: Female
  Weight: 76.2 kg

DRUGS (37)
  1. NEXIUM [Suspect]
     Active Substance: ESOMEPRAZOLE MAGNESIUM
     Indication: Gastrooesophageal reflux disease
     Route: 048
     Dates: start: 2014
  2. NEXIUM [Suspect]
     Active Substance: ESOMEPRAZOLE MAGNESIUM
     Indication: Gastrooesophageal reflux disease
     Route: 048
     Dates: start: 2014, end: 2016
  3. DEXILANT [Suspect]
     Active Substance: DEXLANSOPRAZOLE
     Indication: Gastrooesophageal reflux disease
     Route: 065
     Dates: start: 2014
  4. DEXILANT [Suspect]
     Active Substance: DEXLANSOPRAZOLE
     Indication: Gastrooesophageal reflux disease
     Route: 065
     Dates: start: 2016
  5. PANTOPRAZOLE [Suspect]
     Active Substance: PANTOPRAZOLE
     Indication: Gastrooesophageal reflux disease
     Dosage: GENERIC
     Route: 065
     Dates: start: 2016
  6. DIVALPROEX SODIUM [Concomitant]
     Active Substance: DIVALPROEX SODIUM
  7. ESCITALOPRAM [Concomitant]
     Active Substance: ESCITALOPRAM OXALATE
  8. PERCODAN [Concomitant]
     Active Substance: ASPIRIN\OXYCODONE HYDROCHLORIDE
  9. CIPRO [Concomitant]
     Active Substance: CIPROFLOXACIN HYDROCHLORIDE
  10. IBUPROFEN [Concomitant]
     Active Substance: IBUPROFEN
  11. KEFLEX [Concomitant]
     Active Substance: CEPHALEXIN
  12. SAVELLA [Concomitant]
     Active Substance: MILNACIPRAN HYDROCHLORIDE
  13. UNSPECIFIED INGREDIENT [Concomitant]
     Active Substance: UNSPECIFIED INGREDIENT
  14. ESTRACE [Concomitant]
     Active Substance: ESTRADIOL
  15. PHENAZOPYRIDINE [Concomitant]
     Active Substance: PHENAZOPYRIDINE
  16. TRICOR [Concomitant]
     Active Substance: FENOFIBRATE
  17. VALIUM [Concomitant]
     Active Substance: DIAZEPAM
  18. POTASSIUM [Concomitant]
     Active Substance: POTASSIUM
  19. FUROSEMIDE [Concomitant]
     Active Substance: FUROSEMIDE
  20. CALCIUM [Concomitant]
     Active Substance: CALCIUM
  21. CEFDINIR [Concomitant]
     Active Substance: CEFDINIR
  22. LIDOCAINE [Concomitant]
     Active Substance: LIDOCAINE
  23. MAGNESIUM OXIDE [Concomitant]
     Active Substance: MAGNESIUM OXIDE
  24. POTASSIUM CHLORIDE [Concomitant]
     Active Substance: POTASSIUM CHLORIDE
  25. TIZANIDINE [Concomitant]
     Active Substance: TIZANIDINE
  26. TRAMADOL [Concomitant]
     Active Substance: TRAMADOL
  27. LASIX [Concomitant]
     Active Substance: FUROSEMIDE
  28. DOXYCYCLINE [Concomitant]
     Active Substance: DOXYCYCLINE
  29. AZITHROMYCIN [Concomitant]
     Active Substance: AZITHROMYCIN
  30. CIPROFLOXACIN [Concomitant]
     Active Substance: CIPROFLOXACIN
  31. TRIAMTERENE [Concomitant]
     Active Substance: TRIAMTERENE
  32. TIZANIDINE [Concomitant]
     Active Substance: TIZANIDINE
  33. METRONIDAZOLE [Concomitant]
     Active Substance: METRONIDAZOLE
  34. ESTRADIOL [Concomitant]
     Active Substance: ESTRADIOL
  35. MUPIROCIN [Concomitant]
     Active Substance: MUPIROCIN
  36. SENNAS [Concomitant]
  37. METRONIDAZOLE [Concomitant]
     Active Substance: METRONIDAZOLE

REACTIONS (3)
  - Renal failure [Unknown]
  - Chronic kidney disease [Not Recovered/Not Resolved]
  - Rebound acid hypersecretion [Unknown]

NARRATIVE: CASE EVENT DATE: 20140101
